FAERS Safety Report 7757328-7 (Version None)
Quarter: 2011Q3

REPORT INFORMATION
  Report Type: 
  Country: None (occurrence: None)
  Receive Date: 20110916
  Receipt Date: 20110912
  Transmission Date: 20111222
  Serious: Yes (Life-Threatening, Hospitalization, Other)
  Sender: FDA-Public Use
  Company Number: FR-ABBOTT-11P-056-0714044-00

PATIENT
  Sex: Male
  Weight: 80 kg

DRUGS (3)
  1. HUMIRA [Suspect]
     Indication: ANKYLOSING SPONDYLITIS
  2. HUMIRA [Suspect]
     Indication: RHEUMATOID ARTHRITIS
     Dates: start: 20081004, end: 20110130
  3. KETOPROFEN [Concomitant]
     Indication: ANKYLOSING SPONDYLITIS
     Dates: start: 20060101

REACTIONS (8)
  - RESPIRATORY DISTRESS [None]
  - ASTHENIA [None]
  - CEREBRAL INFARCTION [None]
  - PELVIC VENOUS THROMBOSIS [None]
  - PHLEBITIS [None]
  - PYREXIA [None]
  - SEPTIC SHOCK [None]
  - PNEUMONIA STREPTOCOCCAL [None]
